FAERS Safety Report 9287658 (Version 1)
Quarter: 2013Q2

REPORT INFORMATION
  Report Type: Report from Study
  Country: IL (occurrence: IL)
  Receive Date: 20130514
  Receipt Date: 20130514
  Transmission Date: 20140414
  Serious: Yes (Other)
  Sender: FDA-Public Use
  Company Number: PHHY2013IL046242

PATIENT
  Age: 74 Year
  Sex: Female

DRUGS (1)
  1. ACLASTA [Suspect]
     Indication: OSTEOPOROSIS
     Dosage: 5 MG/100ML YEARLY
     Route: 042
     Dates: start: 20120604

REACTIONS (5)
  - Hip fracture [Unknown]
  - Ankle fracture [Unknown]
  - Alopecia [Unknown]
  - Decreased appetite [Unknown]
  - Bone pain [Unknown]
